FAERS Safety Report 17269682 (Version 1)
Quarter: 2020Q1

REPORT INFORMATION
  Report Type: Spontaneous
  Country: US (occurrence: US)
  Receive Date: 20200114
  Receipt Date: 20200114
  Transmission Date: 20200409
  Serious: No
  Sender: FDA-Public Use
  Company Number: US-NOVOPROD-692757

PATIENT
  Age: 25 Year
  Sex: Male

DRUGS (1)
  1. MACRILEN [Suspect]
     Active Substance: MACIMORELIN
     Indication: CRANIOCEREBRAL INJURY
     Dosage: UNK
     Route: 048
     Dates: start: 20190507

REACTIONS (3)
  - Off label use [Unknown]
  - Therapeutic product effect variable [Unknown]
  - Wrong technique in product usage process [Unknown]

NARRATIVE: CASE EVENT DATE: 20190507
